FAERS Safety Report 16520847 (Version 1)
Quarter: 2019Q3

REPORT INFORMATION
  Report Type: Spontaneous
  Country: AU (occurrence: AU)
  Receive Date: 20190702
  Receipt Date: 20190702
  Transmission Date: 20191004
  Serious: Yes (Death, Hospitalization)
  Sender: FDA-Public Use
  Company Number: AU-MYLANLABS-2019M1061961

PATIENT
  Age: 62 Year
  Sex: Male

DRUGS (26)
  1. BUMETANIDE. [Suspect]
     Active Substance: BUMETANIDE
     Dosage: 4 MILLIGRAM, BID
     Dates: start: 2016
  2. EPLERENONE. [Suspect]
     Active Substance: EPLERENONE
     Indication: PRODUCT USED FOR UNKNOWN INDICATION
     Dosage: 50 MILLIGRAM, QD
     Dates: start: 201511
  3. SOTALOL. [Suspect]
     Active Substance: SOTALOL
     Indication: PRODUCT USED FOR UNKNOWN INDICATION
     Dosage: 80 MILLIGRAM, BID
     Dates: start: 201511
  4. PANTOPRAZOLE MYLAN [Suspect]
     Active Substance: PANTOPRAZOLE SODIUM
     Indication: PRODUCT USED FOR UNKNOWN INDICATION
     Dosage: 40 MILLIGRAM, QD
     Dates: start: 20160928
  5. GLICLAZIDE MYLAN [Suspect]
     Active Substance: GLICLAZIDE
     Indication: PRODUCT USED FOR UNKNOWN INDICATION
     Dosage: 60 MILLIGRAM, QD
     Dates: start: 20160928
  6. EPLERENONE. [Suspect]
     Active Substance: EPLERENONE
     Dosage: 25 MILLIGRAM, QD
     Dates: start: 201511
  7. WARFARIN [Suspect]
     Active Substance: WARFARIN
     Indication: PRODUCT USED FOR UNKNOWN INDICATION
     Dosage: UNK MILLIGRAM
     Dates: start: 2013
  8. ATORVASTATIN MYLAN [Suspect]
     Active Substance: ATORVASTATIN
     Dosage: 40 MILLIGRAM
     Dates: start: 20160928
  9. CARVEDILOL MYLAN [Suspect]
     Active Substance: CARVEDILOL
     Indication: PRODUCT USED FOR UNKNOWN INDICATION
     Dosage: 12.5 MILLIGRAM, BID
     Dates: start: 201511
  10. ATORVASTATIN MYLAN [Suspect]
     Active Substance: ATORVASTATIN
     Indication: PRODUCT USED FOR UNKNOWN INDICATION
     Dosage: 40 MILLIGRAM
     Dates: start: 201511
  11. BUMETANIDE. [Suspect]
     Active Substance: BUMETANIDE
     Dosage: 5 MILLIGRAM, BID
     Dates: start: 201511
  12. PERINDOPRIL MYLAN [Suspect]
     Active Substance: PERINDOPRIL ERBUMINE
     Indication: PRODUCT USED FOR UNKNOWN INDICATION
     Dosage: 10 MILLIGRAM
     Dates: start: 201511
  13. ISOSORBIDE MONONITRATE MYLAN [Suspect]
     Active Substance: ISOSORBIDE MONONITRATE
     Indication: PRODUCT USED FOR UNKNOWN INDICATION
     Dosage: UNK, QD
     Dates: start: 201511
  14. ALLOPURINOL MYLAN [Suspect]
     Active Substance: ALLOPURINOL
     Indication: PRODUCT USED FOR UNKNOWN INDICATION
     Dosage: 200 UNK, QD
     Dates: start: 201511
  15. ALLOPURINOL MYLAN [Suspect]
     Active Substance: ALLOPURINOL
     Dosage: 200 UNK, QD
     Dates: start: 20160928
  16. EPLERENONE. [Suspect]
     Active Substance: EPLERENONE
     Dosage: 25 MILLIGRAM, QD
     Dates: start: 20160928
  17. DIGOXIN. [Suspect]
     Active Substance: DIGOXIN
     Dosage: 62.5 MILLIGRAM, QD
     Dates: start: 20160928
  18. WARFARIN [Suspect]
     Active Substance: WARFARIN
     Dosage: 3 MILLIGRAM, QD
     Dates: start: 201511
  19. SPIRIVA [Suspect]
     Active Substance: TIOTROPIUM BROMIDE MONOHYDRATE
     Dosage: UNK
     Dates: start: 20160928
  20. DIGOXIN. [Suspect]
     Active Substance: DIGOXIN
     Indication: PRODUCT USED FOR UNKNOWN INDICATION
     Dosage: 62.5 MILLIGRAM, QD
     Dates: start: 201511
  21. PERINDOPRIL MYLAN [Suspect]
     Active Substance: PERINDOPRIL ERBUMINE
     Dosage: 10 MILLIGRAM
     Dates: start: 20160928
  22. BUMETANIDE. [Suspect]
     Active Substance: BUMETANIDE
     Indication: PRODUCT USED FOR UNKNOWN INDICATION
     Dosage: 4 MILLIGRAM, BID
     Dates: start: 201511
  23. SPIRIVA [Suspect]
     Active Substance: TIOTROPIUM BROMIDE MONOHYDRATE
     Indication: PRODUCT USED FOR UNKNOWN INDICATION
     Dosage: UNK
     Dates: start: 201511
  24. ISOSORBIDE MONONITRATE MYLAN [Suspect]
     Active Substance: ISOSORBIDE MONONITRATE
     Dosage: UNK, QD
     Dates: start: 20160928
  25. ONBREZ [Suspect]
     Active Substance: INDACATEROL
     Indication: PRODUCT USED FOR UNKNOWN INDICATION
     Dosage: UNK
     Dates: start: 201511
  26. ONBREZ [Suspect]
     Active Substance: INDACATEROL
     Dosage: UNK
     Dates: start: 20160928

REACTIONS (7)
  - Aortic arteriosclerosis [Unknown]
  - End stage renal disease [Fatal]
  - Staphylococcal sepsis [Unknown]
  - Gastrointestinal haemorrhage [Unknown]
  - Pneumonia [Unknown]
  - Urinary tract infection [Unknown]
  - Cardiac failure [Unknown]

NARRATIVE: CASE EVENT DATE: 201609
